FAERS Safety Report 5904184-5 (Version None)
Quarter: 2008Q4

REPORT INFORMATION
  Report Type: 
  Country: None (occurrence: None)
  Receive Date: 20081001
  Receipt Date: 20080922
  Transmission Date: 20090506
  Serious: Yes (Death)
  Sender: FDA-Public Use
  Company Number: NL-TEVA-177899ISR

PATIENT
  Age: 51 Year
  Sex: Male

DRUGS (3)
  1. DEXAMETHASONE [Suspect]
  2. VALPROIC ACID [Suspect]
     Indication: EPILEPSY
  3. LEVETIRACETAM [Concomitant]
     Indication: EPILEPSY

REACTIONS (3)
  - BACTERAEMIA [None]
  - GLIOBLASTOMA MULTIFORME [None]
  - HYPERGLYCAEMIA [None]
